FAERS Safety Report 7352253-8 (Version None)
Quarter: 2011Q1

REPORT INFORMATION
  Report Type: 
  Country: None (occurrence: None)
  Receive Date: 20110309
  Receipt Date: 20110309
  Transmission Date: 20110831
  Serious: No
  Sender: FDA-Public Use
  Company Number: None

PATIENT
  Sex: Female
  Weight: 20 kg

DRUGS (1)
  1. MAGNESIUM SULFATE [Suspect]
     Indication: ASTHMA
     Dosage: 1 GM X1 IV DRIP
     Route: 041

REACTIONS (1)
  - HYPOTENSION [None]
